FAERS Safety Report 18598150 (Version 4)
Quarter: 2021Q1

REPORT INFORMATION
  Report Type: Spontaneous
  Country: US (occurrence: US)
  Receive Date: 20201209
  Receipt Date: 20210218
  Transmission Date: 20210419
  Serious: Yes (Other)
  Sender: FDA-Public Use
  Company Number: US-009507513-2012USA003216

PATIENT
  Age: 41 Year
  Sex: Female
  Weight: 129.25 kg

DRUGS (2)
  1. NEXPLANON [Suspect]
     Active Substance: ETONOGESTREL
     Indication: CONTRACEPTION
     Dosage: 1 IMPLANT, EVERY 3 YEARS, LEFT UPPER ARM
     Route: 059
     Dates: start: 2017, end: 20210114
  2. NEXPLANON [Suspect]
     Active Substance: ETONOGESTREL
     Indication: CONTRACEPTION
     Dosage: 1 IMPLANT, LEFT UPPER ARM
     Route: 059
     Dates: start: 20201123

REACTIONS (8)
  - Device breakage [Recovered/Resolved]
  - Expired product administered [Unknown]
  - Device issue [Recovered/Resolved]
  - Overdose [Unknown]
  - General anaesthesia [Recovered/Resolved]
  - Surgery [Recovered/Resolved]
  - Incorrect product administration duration [Unknown]
  - Complication of device removal [Recovered/Resolved]

NARRATIVE: CASE EVENT DATE: 2020
